FAERS Safety Report 8805720 (Version 2)
Quarter: 2015Q2

REPORT INFORMATION
  Report Type: Report from Study
  Country: US (occurrence: US)
  Receive Date: 20120924
  Receipt Date: 20150618
  Transmission Date: 20150821
  Serious: Yes (Death)
  Sender: FDA-Public Use
  Company Number: US-ROCHE-1125142

PATIENT
  Sex: Male
  Weight: 79 kg

DRUGS (6)
  1. GRANISETRON [Concomitant]
     Active Substance: GRANISETRON
     Route: 042
  2. XELODA [Concomitant]
     Active Substance: CAPECITABINE
     Dosage: 3 TABLETS
     Route: 048
  3. AVASTIN [Suspect]
     Active Substance: BEVACIZUMAB
     Indication: PANCREATIC CARCINOMA
     Route: 042
     Dates: start: 20050426
  4. OXALIPLATIN. [Concomitant]
     Active Substance: OXALIPLATIN
     Route: 042
  5. MAGNESIUM SULFATE. [Concomitant]
     Active Substance: MAGNESIUM SULFATE
     Route: 065
  6. CALCIUM GLUCONATE. [Concomitant]
     Active Substance: CALCIUM GLUCONATE
     Route: 065

REACTIONS (4)
  - Hypersensitivity [Unknown]
  - Off label use [Unknown]
  - Death [Fatal]
  - Paraesthesia [Unknown]
